FAERS Safety Report 24050419 (Version 1)
Quarter: 2024Q3

REPORT INFORMATION
  Report Type: Spontaneous
  Country: DE (occurrence: DE)
  Receive Date: 20240704
  Receipt Date: 20240704
  Transmission Date: 20241017
  Serious: Yes (Hospitalization)
  Sender: NOVARTIS
  Company Number: DE-ROCHE-2729899

PATIENT
  Age: 58 Year
  Sex: Male

DRUGS (12)
  1. OFATUMUMAB [Suspect]
     Active Substance: OFATUMUMAB
     Indication: Relapsing multiple sclerosis
     Dosage: UNK
     Route: 065
  2. OCRELIZUMAB [Suspect]
     Active Substance: OCRELIZUMAB
     Indication: Relapsing multiple sclerosis
     Dosage: 300 MG, BIW
     Route: 042
     Dates: start: 20181030, end: 20181112
  3. OCRELIZUMAB [Suspect]
     Active Substance: OCRELIZUMAB
     Dosage: 600 MG (EVERY 6 MONTHS)
     Route: 042
     Dates: start: 20190430
  4. EBASTINE [Concomitant]
     Active Substance: EBASTINE
     Indication: Seasonal allergy
     Dosage: 20 MG, BID
     Route: 048
     Dates: start: 201806, end: 201901
  5. EBASTINE [Concomitant]
     Active Substance: EBASTINE
     Dosage: 20 MG, QD
     Route: 048
     Dates: start: 201901
  6. IBUPROFEN [Concomitant]
     Active Substance: IBUPROFEN
     Indication: Product used for unknown indication
     Dosage: 400 MG
     Route: 048
  7. TRESIBA [Concomitant]
     Active Substance: INSULIN DEGLUDEC
     Indication: Diabetes mellitus
     Dosage: 16 IU, QD
     Route: 058
     Dates: start: 202004
  8. HUMALOG [Concomitant]
     Active Substance: INSULIN LISPRO
     Indication: Diabetes mellitus
     Dosage: UNK (DEFINITION OF THE INTERVAL: AS REQUIRED)
     Route: 058
     Dates: start: 201903
  9. LANTUS [Concomitant]
     Active Substance: INSULIN GLARGINE
     Indication: Diabetes mellitus
     Dosage: 12 IU, BID
     Route: 058
     Dates: start: 201908, end: 202004
  10. LANTUS [Concomitant]
     Active Substance: INSULIN GLARGINE
     Dosage: 15 IU, QD
     Route: 058
     Dates: start: 201903, end: 201908
  11. LANTUS [Concomitant]
     Active Substance: INSULIN GLARGINE
     Dosage: 14 IU, QD
     Route: 058
     Dates: start: 201903, end: 201908
  12. PREDNISOLONE [Concomitant]
     Active Substance: PREDNISOLONE
     Indication: Multiple sclerosis relapse
     Dosage: 1000 MG, QD
     Route: 048
     Dates: start: 20181019, end: 20181021

REACTIONS (2)
  - COVID-19 [Recovered/Resolved]
  - Dizziness postural [Unknown]

NARRATIVE: CASE EVENT DATE: 20201127
